FAERS Safety Report 6266214-3 (Version None)
Quarter: 2009Q3

REPORT INFORMATION
  Report Type: 
  Country: None (occurrence: None)
  Receive Date: 20090709
  Receipt Date: 20090703
  Transmission Date: 20100115
  Serious: Yes (Other)
  Sender: FDA-Public Use
  Company Number: 2009SP013838

PATIENT
  Age: 30 Year
  Sex: Female

DRUGS (5)
  1. DIPROGENTA (BETAMETHASONE DIPROPIONATE/GENTAMICIN SULFATE) (BETAMETHAS [Suspect]
     Indication: ARTHROPOD BITE
     Dosage: 05 MG, BID;
     Dates: start: 20090328, end: 20090408
  2. NACIL [Concomitant]
  3. PREDNISONE [Concomitant]
  4. INCLARIN [Concomitant]
  5. MEFINAL [Concomitant]

REACTIONS (7)
  - EAR PAIN [None]
  - HYPOAESTHESIA [None]
  - PAIN IN EXTREMITY [None]
  - SKIN DISCOLOURATION [None]
  - SKIN LESION [None]
  - SKIN NECROSIS [None]
  - SKIN SWELLING [None]
